FAERS Safety Report 21196453 (Version 3)
Quarter: 2024Q2

REPORT INFORMATION
  Report Type: Spontaneous
  Country: IT (occurrence: IT)
  Receive Date: 20220810
  Receipt Date: 20240513
  Transmission Date: 20240716
  Serious: Yes (Other)
  Sender: FDA-Public Use
  Company Number: IT-MINISAL02-880798

PATIENT
  Age: 75 Year
  Sex: Female
  Weight: 62 kg

DRUGS (6)
  1. YERVOY [Suspect]
     Active Substance: IPILIMUMAB
     Indication: Pleural mesothelioma
     Route: 042
     Dates: start: 20210716, end: 20220722
  2. OPDIVO [Suspect]
     Active Substance: NIVOLUMAB
     Indication: Pleural mesothelioma
     Route: 042
     Dates: start: 20210716, end: 20220722
  3. BISOPROLOL [Concomitant]
     Active Substance: BISOPROLOL\BISOPROLOL FUMARATE
     Indication: Product used for unknown indication
  4. LEVOTHYROXINE SODIUM [Concomitant]
     Active Substance: LEVOTHYROXINE SODIUM
     Indication: Product used for unknown indication
  5. RAMIPRIL [Concomitant]
     Active Substance: RAMIPRIL
     Indication: Product used for unknown indication
  6. NORVASC [Concomitant]
     Active Substance: AMLODIPINE BESYLATE
     Indication: Product used for unknown indication

REACTIONS (2)
  - Diabetes mellitus [Recovering/Resolving]
  - Prescribed underdose [Unknown]

NARRATIVE: CASE EVENT DATE: 20220802
